FAERS Safety Report 5713849-X (Version None)
Quarter: 2008Q2

REPORT INFORMATION
  Report Type: 
  Country: None (occurrence: None)
  Receive Date: 20080421
  Receipt Date: 20080409
  Transmission Date: 20081010
  Serious: Yes (Other)
  Sender: FDA-Public Use
  Company Number: A0110476A

PATIENT
  Age: 6 Year
  Sex: Male
  Weight: 23.5417 kg

DRUGS (4)
  1. RELENZA [Suspect]
     Indication: INFLUENZA
     Dosage: 10 MG TWICE PER DAY INHALED
     Route: 055
  2. SALBUTAMOL SULPHATE [Concomitant]
  3. BECLOMETHASONE DIPROPIONATE [Concomitant]
  4. GUAIFENESIN [Concomitant]

REACTIONS (6)
  - FALL [None]
  - HYPOGLYCAEMIA [None]
  - HYPOTENSION [None]
  - INSOMNIA [None]
  - ORAL INTAKE REDUCED [None]
  - UNRESPONSIVE TO STIMULI [None]
